FAERS Safety Report 5042723-X (Version None)
Quarter: 2006Q3

REPORT INFORMATION
  Report Type: 
  Country: None (occurrence: None)
  Receive Date: 20060705
  Receipt Date: 20060626
  Transmission Date: 20061208
  Serious: Yes (Hospitalization)
  Sender: FDA-Public Use
  Company Number: ES-AVENTIS-200613555EU

PATIENT
  Age: 69 Year
  Sex: Female

DRUGS (2)
  1. TERTENSIF [Suspect]
     Indication: HYPERTENSION
     Route: 048
     Dates: start: 20060516, end: 20060520
  2. TRILEPTAL [Suspect]
     Indication: EPILEPSY
     Route: 048
     Dates: start: 20030101, end: 20060520

REACTIONS (2)
  - CONFUSIONAL STATE [None]
  - HYPONATRAEMIA [None]
